FAERS Safety Report 4337702-1 (Version None)
Quarter: 2004Q2

REPORT INFORMATION
  Report Type: 
  Country: None (occurrence: None)
  Receive Date: 20040413
  Receipt Date: 20040204
  Transmission Date: 20050107
  Serious: Yes (Life-Threatening, Hospitalization, Other)
  Sender: FDA-Public Use
  Company Number: US-MERCK-0402USA00397

PATIENT
  Age: 64 Year
  Sex: Female
  Weight: 83 kg

DRUGS (4)
  1. ASPIRIN [Concomitant]
     Route: 065
  2. MONOPRIL [Suspect]
     Indication: HYPERTENSION
     Route: 048
  3. VIOXX [Suspect]
     Indication: ARTHRALGIA
     Route: 048
     Dates: start: 20030101, end: 20031001
  4. VIOXX [Suspect]
     Indication: INFLAMMATION
     Route: 048
     Dates: start: 20030101, end: 20031001

REACTIONS (7)
  - BLOOD PRESSURE INCREASED [None]
  - DRUG INTERACTION [None]
  - EMBOLIC STROKE [None]
  - FALL [None]
  - HEAD INJURY [None]
  - OEDEMA [None]
  - WEIGHT INCREASED [None]
